FAERS Safety Report 16818144 (Version 1)
Quarter: 2019Q3

REPORT INFORMATION
  Report Type: Spontaneous
  Country: US (occurrence: US)
  Receive Date: 20190917
  Receipt Date: 20190917
  Transmission Date: 20191005
  Serious: No
  Sender: FDA-Public Use
  Company Number: US-PERRIGO-19US004339

PATIENT
  Age: 50 Year
  Sex: Male
  Weight: 122.45 kg

DRUGS (6)
  1. TESTOSTERONE. [Suspect]
     Active Substance: TESTOSTERONE
     Indication: ANDROGEN DEFICIENCY
     Dosage: 20.25 MG, QD
     Route: 061
     Dates: start: 2018
  2. ALLOPURINOL. [Concomitant]
     Active Substance: ALLOPURINOL
     Indication: GOUT
     Dosage: UNK
     Route: 065
     Dates: start: 2018
  3. VITAMIN D                          /00107901/ [Concomitant]
     Active Substance: ERGOCALCIFEROL
     Indication: SUPPLEMENTATION THERAPY
     Dosage: UNK
     Route: 065
  4. LEVOTHYROXINE. [Concomitant]
     Active Substance: LEVOTHYROXINE
     Indication: HYPOTHYROIDISM
     Dosage: UNK
     Route: 065
     Dates: start: 2018
  5. LINZESS [Concomitant]
     Active Substance: LINACLOTIDE
     Indication: IRRITABLE BOWEL SYNDROME
     Dosage: UNK
     Route: 065
     Dates: start: 2016
  6. LISINOPRIL. [Concomitant]
     Active Substance: LISINOPRIL
     Indication: PROPHYLAXIS
     Dosage: UNK
     Route: 065

REACTIONS (2)
  - Application site rash [Unknown]
  - Skin discolouration [Unknown]

NARRATIVE: CASE EVENT DATE: 201901
